FAERS Safety Report 22295997 (Version 1)
Quarter: 2023Q2

REPORT INFORMATION
  Report Type: Spontaneous
  Country: None (occurrence: NO)
  Receive Date: 20230508
  Receipt Date: 20230508
  Transmission Date: 20230721
  Serious: Yes (Death, Hospitalization)
  Sender: FDA-Public Use
  Company Number: NO-Hill Dermaceuticals, Inc.-2141234

PATIENT
  Age: 70 Year
  Sex: Female

DRUGS (1)
  1. TOLAK [Suspect]
     Active Substance: FLUOROURACIL
     Indication: Actinic keratosis
     Route: 061
     Dates: start: 2022, end: 2022

REACTIONS (4)
  - Illness [Fatal]
  - Condition aggravated [Fatal]
  - Product administered at inappropriate site [None]
  - Off label use [None]

NARRATIVE: CASE EVENT DATE: 20220101
